FAERS Safety Report 20957880 (Version 2)
Quarter: 2022Q3

REPORT INFORMATION
  Report Type: Report from Study
  Country: US (occurrence: US)
  Receive Date: 20220614
  Receipt Date: 20220923
  Transmission Date: 20221027
  Serious: Yes (Hospitalization)
  Sender: FDA-Public Use
  Company Number: US-BIOVITRUM-2022US07729

PATIENT
  Age: 34 Year
  Sex: Female

DRUGS (1)
  1. KINERET [Suspect]
     Active Substance: ANAKINRA
     Indication: Pericarditis
     Dates: start: 20220517

REACTIONS (21)
  - Dyspnoea [Unknown]
  - Sinusitis [Unknown]
  - Headache [Unknown]
  - Nasopharyngitis [Unknown]
  - Oropharyngeal pain [Unknown]
  - Sneezing [Unknown]
  - Dizziness [Unknown]
  - Vertigo [Unknown]
  - Abdominal pain upper [Unknown]
  - White blood cell count increased [Unknown]
  - Gastrointestinal disorder [Unknown]
  - Nausea [Unknown]
  - Nasal congestion [Unknown]
  - Cough [Unknown]
  - Arthralgia [Unknown]
  - COVID-19 [Unknown]
  - Inflammation [Recovering/Resolving]
  - Tachycardia [Unknown]
  - Blood cholesterol abnormal [Unknown]
  - Product dose omission issue [Unknown]
  - Off label use [Unknown]

NARRATIVE: CASE EVENT DATE: 20220517
